FAERS Safety Report 5739607-8 (Version None)
Quarter: 2008Q2

REPORT INFORMATION
  Report Type: 
  Country: None (occurrence: None)
  Receive Date: 20080513
  Receipt Date: 20071025
  Transmission Date: 20081010
  Serious: Yes (Hospitalization, Disabling, Other)
  Sender: FDA-Public Use
  Company Number: 81283

PATIENT
  Age: 20 Year
  Sex: Male
  Weight: 63 kg

DRUGS (2)
  1. IBUPROFEN [Suspect]
     Dosage: 400MG/ 3/1 DAYS/ ORAL
     Route: 048
     Dates: start: 20071013, end: 20071016
  2. DICLOFENAC 50 MG/ UNKNOWN [Suspect]
     Dosage: 50 MG/ 3/1 DAYS/ ORAL
     Route: 048
     Dates: start: 20071013, end: 20071016

REACTIONS (1)
  - NEPHRITIS INTERSTITIAL [None]
